FAERS Safety Report 16468869 (Version 3)
Quarter: 2023Q1

REPORT INFORMATION
  Report Type: Spontaneous
  Country: US (occurrence: US)
  Receive Date: 20190624
  Receipt Date: 20230315
  Transmission Date: 20230417
  Serious: No
  Sender: FDA-Public Use
  Company Number: US-PFIZER INC-2019268310

PATIENT
  Age: 75 Year
  Sex: Female

DRUGS (2)
  1. BOSULIF [Suspect]
     Active Substance: BOSUTINIB MONOHYDRATE
     Indication: Chronic myeloid leukaemia
     Dosage: 100 MG
  2. BOSULIF [Suspect]
     Active Substance: BOSUTINIB MONOHYDRATE
     Indication: Chronic myeloid leukaemia (in remission)

REACTIONS (3)
  - Labyrinthitis [Unknown]
  - Hypoacusis [Not Recovered/Not Resolved]
  - Malaise [Unknown]
